FAERS Safety Report 7715526-2 (Version None)
Quarter: 2011Q3

REPORT INFORMATION
  Report Type: 
  Country: None (occurrence: None)
  Receive Date: 20110822
  Receipt Date: 20110804
  Transmission Date: 20111222
  Serious: Yes (Death, Other)
  Sender: FDA-Public Use
  Company Number: 2011MA011485

PATIENT
  Age: 46 Year

DRUGS (2)
  1. METHADONE HCL [Suspect]
     Dosage: 0.2 MG/L;  ;
  2. VENLAFAXINE HYDROCHLORIDE [Suspect]

REACTIONS (9)
  - SNORING [None]
  - PULMONARY OEDEMA [None]
  - OVERDOSE [None]
  - NEEDLE TRACK MARKS [None]
  - TOXICITY TO VARIOUS AGENTS [None]
  - PNEUMONIA [None]
  - RESPIRATORY DEPRESSION [None]
  - ASPIRATION [None]
  - PULMONARY CONGESTION [None]
